FAERS Safety Report 7836979-5 (Version None)
Quarter: 2011Q4

REPORT INFORMATION
  Report Type: 
  Country: None (occurrence: None)
  Receive Date: 20111024
  Receipt Date: 20110104
  Transmission Date: 20120403
  Serious: No
  Sender: FDA-Public Use
  Company Number: US-ABBOTT-11P-163-0695699-00

PATIENT
  Sex: Female
  Weight: 74.91 kg

DRUGS (3)
  1. LUPRON DEPOT [Suspect]
     Indication: UTERINE ENLARGEMENT
     Route: 030
     Dates: start: 20100901, end: 20101130
  2. LUPRON DEPOT [Suspect]
     Indication: ENDOMETRIOSIS
  3. LUPRON DEPOT [Suspect]
     Indication: UTERINE LEIOMYOMA

REACTIONS (4)
  - ABDOMINAL PAIN [None]
  - CONSTIPATION [None]
  - HAEMORRHOIDS [None]
  - DRUG INEFFECTIVE [None]
